FAERS Safety Report 7395674-X (Version None)
Quarter: 2011Q2

REPORT INFORMATION
  Report Type: 
  Country: None (occurrence: None)
  Receive Date: 20110405
  Receipt Date: 20110401
  Transmission Date: 20111010
  Serious: Yes (Disabling, Other)
  Sender: FDA-Public Use
  Company Number: US-AMGEN-USASP2011009906

PATIENT
  Age: 80 Year
  Sex: Male
  Weight: 78.005 kg

DRUGS (2)
  1. NPLATE [Suspect]
     Indication: THROMBOCYTOPENIA
     Dosage: 400 A?G, QWK
     Route: 058
     Dates: start: 20100114, end: 20101011
  2. IVIGLOB-EX [Concomitant]

REACTIONS (1)
  - RETINAL ARTERY OCCLUSION [None]
